FAERS Safety Report 18800685 (Version 1)
Quarter: 2021Q1

REPORT INFORMATION
  Report Type: Spontaneous
  Country: US (occurrence: US)
  Receive Date: 20210128
  Receipt Date: 20210128
  Transmission Date: 20210419
  Serious: No
  Sender: FDA-Public Use
  Company Number: US-ABBVIE-20K-163-3595418-00

PATIENT
  Sex: Male

DRUGS (1)
  1. LUPRON [Suspect]
     Active Substance: LEUPROLIDE ACETATE
     Indication: PROSTATE CANCER
     Route: 030
     Dates: start: 201701, end: 201705

REACTIONS (4)
  - Decreased activity [Unknown]
  - Feeling abnormal [Unknown]
  - Fatigue [Unknown]
  - Loss of libido [Unknown]

NARRATIVE: CASE EVENT DATE: 2017
